FAERS Safety Report 4285347-4 (Version None)
Quarter: 2004Q1

REPORT INFORMATION
  Report Type: 
  Country: None (occurrence: None)
  Receive Date: 20040202
  Receipt Date: 20040116
  Transmission Date: 20041129
  Serious: Yes (Hospitalization)
  Sender: FDA-Public Use
  Company Number: S04-FRA-00303-01

PATIENT
  Age: 29 Year
  Sex: Female

DRUGS (5)
  1. SEROPRAM (CITALOPRAM HYDROBROMIDE) [Suspect]
     Dosage: 20 MG BID PO
     Route: 048
     Dates: start: 20030315, end: 20031231
  2. XANAX [Suspect]
     Dosage: 0.75 MG QD PO
     Route: 048
     Dates: start: 20030115, end: 20031210
  3. IMOVANE (ZOPICLONE) [Suspect]
     Dosage: 7.5 MG QD PO
     Route: 048
     Dates: start: 20030115, end: 20031210
  4. SOLIAN (AMISULPRIDE) [Suspect]
     Dosage: 200 MG QD PO
     Route: 048
     Dates: start: 20030315, end: 20031231
  5. DIHYDROERGOTAMINE [Suspect]
     Dosage: 1 BID PO
     Route: 048
     Dates: start: 20031115, end: 20031231

REACTIONS (8)
  - BLOOD BILIRUBIN INCREASED [None]
  - COAGULATION FACTOR V LEVEL INCREASED [None]
  - CYTOLYTIC HEPATITIS [None]
  - HEPATIC STEATOSIS [None]
  - HYPERCHLORAEMIA [None]
  - HYPERPHOSPHATAEMIA [None]
  - HYPOCHOLESTEROLAEMIA [None]
  - METABOLIC ACIDOSIS [None]
